FAERS Safety Report 14498447 (Version 1)
Quarter: 2018Q1

REPORT INFORMATION
  Report Type: Spontaneous
  Country: CN (occurrence: CN)
  Receive Date: 20180207
  Receipt Date: 20180207
  Transmission Date: 20180509
  Serious: Yes (Hospitalization, Other)
  Sender: FDA-Public Use
  Company Number: CN-PFIZER INC-2018052422

PATIENT
  Age: 56 Year
  Sex: Female
  Weight: 55 kg

DRUGS (7)
  1. LIPITOR [Suspect]
     Active Substance: ATORVASTATIN CALCIUM
     Indication: CORONARY ARTERY DISEASE
     Dosage: 20 MG, 1X/DAY
     Route: 048
     Dates: start: 201607, end: 20171114
  2. GLUTAMINE [Concomitant]
     Active Substance: GLUTAMINE
     Indication: PARENTERAL NUTRITION
     Dosage: 10 G, 1X/DAY
     Route: 041
     Dates: start: 20171111, end: 20171115
  3. XINGNAOJING INJECTION [Concomitant]
     Indication: LACUNAR INFARCTION
     Dosage: 20 MG, 1X/DAY
     Route: 042
     Dates: start: 20171111, end: 20171115
  4. AO XI KANG [Concomitant]
     Indication: UPPER GASTROINTESTINAL HAEMORRHAGE
     Dosage: 40 MG, 2X/DAY
     Route: 041
     Dates: start: 20171111, end: 20171115
  5. COMPOUND AMINO ACID INJECTION(15-HBC) [Concomitant]
     Indication: PARENTERAL NUTRITION
     Dosage: 250 ML, 1X/DAY
     Route: 041
     Dates: start: 20171111, end: 20171115
  6. LIPITOR [Suspect]
     Active Substance: ATORVASTATIN CALCIUM
     Indication: LIPIDS
  7. AO XI KANG [Concomitant]
     Indication: HAEMORRHAGIC ANAEMIA

REACTIONS (4)
  - Alanine aminotransferase increased [Recovering/Resolving]
  - Vomiting [Unknown]
  - Aspartate aminotransferase increased [Recovered/Resolved]
  - Confusional state [Unknown]

NARRATIVE: CASE EVENT DATE: 20171111
